FAERS Safety Report 7023257-X (Version None)
Quarter: 2010Q3

REPORT INFORMATION
  Report Type: 
  Country: None (occurrence: None)
  Receive Date: 20100930
  Receipt Date: 20100923
  Transmission Date: 20110219
  Serious: Yes (Other)
  Sender: FDA-Public Use
  Company Number: AT-ABBOTT-10P-009-0672985-00

PATIENT
  Sex: Female
  Weight: 50 kg

DRUGS (2)
  1. HUMIRA [Suspect]
     Indication: PSORIASIS
     Route: 058
     Dates: start: 20100420, end: 20100910
  2. HUMIRA [Suspect]
     Indication: PROSTATIC SPECIFIC ANTIGEN

REACTIONS (6)
  - DERMATITIS [None]
  - DRUG INTOLERANCE [None]
  - ILL-DEFINED DISORDER [None]
  - PSORIASIS [None]
  - RASH PUSTULAR [None]
  - SKIN BURNING SENSATION [None]
